FAERS Safety Report 13179463 (Version 4)
Quarter: 2017Q2

REPORT INFORMATION
  Report Type: Spontaneous
  Country: NL (occurrence: NL)
  Receive Date: 20170202
  Receipt Date: 20170407
  Transmission Date: 20170830
  Serious: Yes (Other)
  Sender: FDA-Public Use
  Company Number: NL-GLAXOSMITHKLINE-NL2017GSK013072

PATIENT
  Age: 61 Year
  Sex: Male
  Weight: 78.5 kg

DRUGS (5)
  1. AVAMYS [Suspect]
     Active Substance: FLUTICASONE FUROATE
     Dosage: 4 DF, BID
  2. ZOPICLON [Concomitant]
     Active Substance: ZOPICLONE
     Dosage: 7.5 MG, QD
     Dates: start: 20070509
  3. AVAMYS [Suspect]
     Active Substance: FLUTICASONE FUROATE
     Dosage: 4 DF, QD
  4. AVAMYS [Suspect]
     Active Substance: FLUTICASONE FUROATE
     Indication: RHINITIS ALLERGIC
     Dosage: 55 UG, QD
     Dates: start: 20161124, end: 20170116
  5. NASONEX [Concomitant]
     Active Substance: MOMETASONE FUROATE
     Dosage: UNK
     Dates: end: 2016

REACTIONS (9)
  - Listless [Recovering/Resolving]
  - Headache [Recovered/Resolved]
  - Vocal cord paralysis [Recovering/Resolving]
  - Sinusitis [Recovering/Resolving]
  - Pyrexia [Recovering/Resolving]
  - Oropharyngeal pain [Recovering/Resolving]
  - Libido decreased [Recovering/Resolving]
  - Aphonia [Recovering/Resolving]
  - Migraine [Recovering/Resolving]

NARRATIVE: CASE EVENT DATE: 2016
